FAERS Safety Report 4808981-9 (Version None)
Quarter: 2005Q4

REPORT INFORMATION
  Report Type: 
  Country: None (occurrence: None)
  Receive Date: 20051025
  Receipt Date: 20051019
  Transmission Date: 20060501
  Serious: Yes (Hospitalization)
  Sender: FDA-Public Use
  Company Number: US-ROCHE-421963

PATIENT

DRUGS (1)
  1. PEGASYS [Suspect]
     Indication: DRUG USE FOR UNKNOWN INDICATION
     Dosage: ROUTE: INJ
     Route: 050

REACTIONS (3)
  - ILL-DEFINED DISORDER [None]
  - ORGAN FAILURE [None]
  - PLEURAL EFFUSION [None]
